FAERS Safety Report 13050632 (Version 1)
Quarter: 2016Q4

REPORT INFORMATION
  Report Type: Spontaneous
  Country: US (occurrence: US)
  Receive Date: 20161221
  Receipt Date: 20161221
  Transmission Date: 20170207
  Serious: No
  Sender: FDA-Public Use
  Company Number: US-PFIZER INC-2016578310

PATIENT
  Age: 42 Year
  Sex: Female

DRUGS (2)
  1. IBUPROFEN. [Suspect]
     Active Substance: IBUPROFEN
     Dosage: UNKNOWN
  2. MELOXICAM. [Suspect]
     Active Substance: MELOXICAM
     Dosage: UNKNOWN

REACTIONS (4)
  - Pharyngeal oedema [Unknown]
  - Lip swelling [Unknown]
  - Sinusitis [Unknown]
  - Drug hypersensitivity [Unknown]
